FAERS Safety Report 8885896 (Version 2)
Quarter: 2012Q4

REPORT INFORMATION
  Report Type: 
  Country: JP (occurrence: JP)
  Receive Date: 20121102
  Receipt Date: 20121120
  Transmission Date: 20130627
  Serious: Yes (Other)
  Sender: FDA-Public Use
  Company Number: JP-UCBSA-069811

PATIENT
  Age: 16 Year
  Sex: Male
  Weight: 63 kg

DRUGS (2)
  1. E KEPPRA [Suspect]
     Indication: EPILEPSY
     Dosage: 44 TABLETS OF 500 MG EACH
     Route: 048
     Dates: start: 20121023, end: 20121023
  2. E KEPPRA [Suspect]
     Indication: EPILEPSY
     Route: 048
     Dates: start: 20120808, end: 2012

REACTIONS (3)
  - Suicide attempt [Unknown]
  - Intentional overdose [Unknown]
  - Feeling abnormal [Recovered/Resolved]
